FAERS Safety Report 20551883 (Version 1)
Quarter: 2022Q1

REPORT INFORMATION
  Report Type: Spontaneous
  Country: US (occurrence: US)
  Receive Date: 20220304
  Receipt Date: 20220304
  Transmission Date: 20220423
  Serious: No
  Sender: FDA-Public Use
  Company Number: US-BIOGEN-2021BI00994103

PATIENT
  Age: 35 Year
  Sex: Female

DRUGS (7)
  1. TECFIDERA [Suspect]
     Active Substance: DIMETHYL FUMARATE
     Indication: Multiple sclerosis
     Dosage: 240/120MILLIGRAM (STARTER DOSE)
     Route: 048
     Dates: start: 20210116
  2. TECFIDERA [Suspect]
     Active Substance: DIMETHYL FUMARATE
     Dosage: 240/120MILLIGRAM
     Route: 048
     Dates: start: 2021
  3. TECFIDERA [Suspect]
     Active Substance: DIMETHYL FUMARATE
     Route: 065
     Dates: start: 20130910, end: 20140103
  4. TECFIDERA [Suspect]
     Active Substance: DIMETHYL FUMARATE
     Route: 065
     Dates: start: 20140103
  5. TECFIDERA [Suspect]
     Active Substance: DIMETHYL FUMARATE
     Route: 065
     Dates: start: 20150317
  6. GABAPENTIN [Concomitant]
     Active Substance: GABAPENTIN
     Route: 065
  7. NORTRIPTYLINE [Concomitant]
     Active Substance: NORTRIPTYLINE
     Route: 065

REACTIONS (21)
  - Product dose omission issue [Unknown]
  - Depression [Unknown]
  - Headache [Unknown]
  - Hyperhidrosis [Unknown]
  - Paraesthesia [Unknown]
  - Bladder disorder [Unknown]
  - Musculoskeletal stiffness [Unknown]
  - Fatigue [Unknown]
  - Back pain [Unknown]
  - Skin disorder [Unknown]
  - Sleep disorder [Unknown]
  - Micturition disorder [Unknown]
  - Constipation [Unknown]
  - Balance disorder [Unknown]
  - Muscle spasticity [Unknown]
  - Scoliosis [Unknown]
  - Dizziness [Unknown]
  - Pain in extremity [Unknown]
  - Gastrointestinal disorder [Unknown]
  - Nausea [Unknown]
  - Pruritus [Unknown]

NARRATIVE: CASE EVENT DATE: 20210301
